FAERS Safety Report 8789458 (Version 2)
Quarter: 2012Q4

REPORT INFORMATION
  Report Type: Spontaneous
  Country: AU (occurrence: None)
  Receive Date: 20120906
  Receipt Date: 20121009
  Transmission Date: 20130627
  Serious: Yes (Hospitalization)
  Sender: FDA-Public Use
  Company Number: 2012-3709

PATIENT
  Age: 63 Year
  Sex: Female

DRUGS (3)
  1. DYSPORT [Suspect]
     Indication: DYSTONIA
     Dosage: (2000 units, 1 in 1 cycle(s),
     Route: 030
     Dates: start: 20110809, end: 20110809
  2. DYSPORT [Suspect]
     Indication: DRUG USE FOR UNAPPROVED INDICATION
     Dosage: (2000 units, 1 in 1 cycle(s),
     Route: 030
     Dates: start: 20110809, end: 20110809
  3. DYSPORT [Suspect]
     Dosage: (2000 units, 1 in 1 cycle(s),
     Route: 030
     Dates: start: 20110809, end: 20110809

REACTIONS (10)
  - Bronchospasm [None]
  - Laryngospasm [None]
  - Dysphonia [None]
  - Dysphagia [None]
  - Dyspnoea [None]
  - Breast cancer [None]
  - Dystonia [None]
  - Upper airway obstruction [None]
  - Stridor [None]
  - Aphonia [None]
